FAERS Safety Report 4578834-2 (Version None)
Quarter: 2005Q1

REPORT INFORMATION
  Report Type: 
  Country: None (occurrence: None)
  Receive Date: 20050211
  Receipt Date: 20050204
  Transmission Date: 20050727
  Serious: Yes (Other)
  Sender: FDA-Public Use
  Company Number: PHEH2005US01660

PATIENT
  Sex: Male

DRUGS (1)
  1. LOTREL [Suspect]
     Indication: HYPERTENSION
     Dosage: UNK, UNK
     Route: 048

REACTIONS (2)
  - GYNAECOMASTIA [None]
  - SURGERY [None]
